FAERS Safety Report 25456433 (Version 2)
Quarter: 2025Q4

REPORT INFORMATION
  Report Type: Other
  Country: GB (occurrence: GB)
  Receive Date: 20250619
  Receipt Date: 20251106
  Transmission Date: 20260119
  Serious: Yes (Congenital Anomaly, Other)
  Sender: GLENMARK
  Company Number: None

PATIENT
  Age: 7 Year
  Sex: Male

DRUGS (1)
  1. TOPIRAMATE [Suspect]
     Active Substance: TOPIRAMATE
     Indication: Migraine prophylaxis
     Dosage: UNK,  7 YEARS AGO BACK IN 2017/2018
     Route: 064

REACTIONS (3)
  - Developmental delay [Unknown]
  - Teratogenicity [Unknown]
  - Foetal exposure during pregnancy [Unknown]

NARRATIVE: CASE EVENT DATE: 20180101
